FAERS Safety Report 6818644-6 (Version None)
Quarter: 2010Q3

REPORT INFORMATION
  Report Type: 
  Country: None (occurrence: None)
  Receive Date: 20100706
  Receipt Date: 20081211
  Transmission Date: 20110219
  Serious: No
  Sender: FDA-Public Use
  Company Number: US-PFIZER INC-2008155749

PATIENT
  Sex: Female

DRUGS (1)
  1. ZITHROMAX [Suspect]
     Indication: TOOTH ABSCESS
     Dates: start: 20080101, end: 20081211

REACTIONS (4)
  - AGITATION [None]
  - ANXIETY [None]
  - DIZZINESS [None]
  - HYPOAESTHESIA [None]
